FAERS Safety Report 7871172-1 (Version None)
Quarter: 2011Q3

REPORT INFORMATION
  Report Type: 
  Country: None (occurrence: None)
  Receive Date: 20110923
  Receipt Date: 20110323
  Transmission Date: 20111222
  Serious: Yes (Hospitalization)
  Sender: FDA-Public Use
  Company Number: 870273

PATIENT
  Age: 66 Year
  Sex: Male
  Weight: 80 kg

DRUGS (9)
  1. BACTRIM DS [Concomitant]
  2. (PEGFILGRASTIM) [Concomitant]
  3. NIPENT [Suspect]
     Indication: CHRONIC LYMPHOCYTIC LEUKAEMIA
     Dosage: 8.1 MG
     Dates: start: 20101108
  4. NIPENT [Suspect]
     Indication: CHRONIC LYMPHOCYTIC LEUKAEMIA
     Dosage: 8.1 MG
     Dates: start: 20110228, end: 20110228
  5. RITUXAN [Suspect]
     Indication: CHRONIC LYMPHOCYTIC LEUKAEMIA
     Dosage: 758 MG
     Dates: start: 20101108
  6. RITUXAN [Suspect]
     Indication: CHRONIC LYMPHOCYTIC LEUKAEMIA
     Dosage: 758 MG
     Dates: start: 20110228, end: 20110228
  7. ACYCLOVIR [Concomitant]
  8. CYCLOPHOSPHAMIDE [Suspect]
     Indication: CHRONIC LYMPHOCYTIC LEUKAEMIA
     Dosage: 1212 MG
     Dates: start: 20110228, end: 20110228
  9. CYCLOPHOSPHAMIDE [Suspect]
     Indication: CHRONIC LYMPHOCYTIC LEUKAEMIA
     Dosage: 1212 MG
     Dates: start: 20101108

REACTIONS (1)
  - PNEUMONIA [None]
